FAERS Safety Report 21110852 (Version 3)
Quarter: 2022Q4

REPORT INFORMATION
  Report Type: Report from Study
  Country: CO (occurrence: CO)
  Receive Date: 20220721
  Receipt Date: 20221102
  Transmission Date: 20230113
  Serious: Yes (Hospitalization, Other)
  Sender: FDA-Public Use
  Company Number: CO-TAKEDA-CO202034046

PATIENT
  Age: 22 Year
  Sex: Female
  Weight: 58 kg

DRUGS (5)
  1. VELAGLUCERASE ALFA [Suspect]
     Active Substance: VELAGLUCERASE ALFA
     Indication: Gaucher^s disease
     Dosage: 60 MILLIGRAM/KILOGRAM, Q2WEEKS
     Route: 042
     Dates: start: 20160111
  2. VELAGLUCERASE ALFA [Suspect]
     Active Substance: VELAGLUCERASE ALFA
     Dosage: 40 MILLIGRAM/KILOGRAM, Q2WEEKS
     Route: 042
     Dates: start: 20160111
  3. VELAGLUCERASE ALFA [Suspect]
     Active Substance: VELAGLUCERASE ALFA
     Dosage: 3480 INTERNATIONAL UNIT, Q2WEEKS
     Route: 042
     Dates: start: 201712
  4. VELAGLUCERASE ALFA [Suspect]
     Active Substance: VELAGLUCERASE ALFA
     Dosage: 3480 INTERNATIONAL UNIT, Q2WEEKS
     Route: 042
     Dates: start: 20161001
  5. VELAGLUCERASE ALFA [Suspect]
     Active Substance: VELAGLUCERASE ALFA
     Dosage: 3480 INTERNATIONAL UNIT, Q2WEEKS
     Route: 042
     Dates: start: 20160111

REACTIONS (10)
  - Induced labour [Recovered/Resolved]
  - Foetal growth abnormality [Unknown]
  - Cough [Not Recovered/Not Resolved]
  - Nasal congestion [Not Recovered/Not Resolved]
  - Weight increased [Unknown]
  - Pregnancy [Unknown]
  - Product dose omission issue [Unknown]
  - Menstruation irregular [Unknown]
  - Exposure during pregnancy [Unknown]
  - Breast feeding [Unknown]

NARRATIVE: CASE EVENT DATE: 20201012
